FAERS Safety Report 23845442 (Version 3)
Quarter: 2024Q3

REPORT INFORMATION
  Report Type: Other
  Country: US (occurrence: US)
  Receive Date: 20240511
  Receipt Date: 20240815
  Transmission Date: 20241017
  Serious: No
  Sender: TRAVERE THERAPEUTICS
  Company Number: US-TRAVERE-2024TVT00395

PATIENT
  Age: 40 Year
  Sex: Female

DRUGS (1)
  1. FILSPARI [Suspect]
     Active Substance: SPARSENTAN
     Indication: IgA nephropathy
     Route: 048
     Dates: start: 20240416

REACTIONS (13)
  - Neck pain [Unknown]
  - Urethral pain [Unknown]
  - Myalgia [Unknown]
  - Dizziness [None]
  - Head discomfort [Unknown]
  - Generalised oedema [None]
  - Fatigue [Unknown]
  - Weight increased [None]
  - Nausea [Unknown]
  - Vomiting [Unknown]
  - Decreased appetite [Unknown]
  - Fluid retention [Unknown]
  - Inappropriate schedule of product administration [Unknown]

NARRATIVE: CASE EVENT DATE: 20240421
